FAERS Safety Report 4974611-9 (Version None)
Quarter: 2006Q1

REPORT INFORMATION
  Report Type: 
  Country: None (occurrence: None)
  Receive Date: 20060216
  Receipt Date: 20051229
  Transmission Date: 20060701
  Serious: No
  Sender: FDA-Public Use
  Company Number: PHEH2005US12424

PATIENT
  Age: 62 Year
  Sex: Female
  Weight: 83.4 kg

DRUGS (3)
  1. GLEEVEC [Suspect]
     Indication: CHRONIC MYELOID LEUKAEMIA
     Dosage: 400 MG, QD, ORAL
     Route: 048
     Dates: start: 20050501
  2. FOSINOPRIL SODIUM [Concomitant]
  3. AMBIEN [Concomitant]

REACTIONS (8)
  - CONTUSION [None]
  - DIARRHOEA [None]
  - FATIGUE [None]
  - HYPERTRICHOSIS [None]
  - OEDEMA PERIPHERAL [None]
  - RASH PRURITIC [None]
  - SWELLING FACE [None]
  - VOMITING [None]
